FAERS Safety Report 6753612-4 (Version None)
Quarter: 2010Q2

REPORT INFORMATION
  Report Type: 
  Country: None (occurrence: None)
  Receive Date: 20100603
  Receipt Date: 20100527
  Transmission Date: 20101027
  Serious: Yes (Death, Hospitalization, Other)
  Sender: FDA-Public Use
  Company Number: JP-ROCHE-682341

PATIENT
  Sex: Female

DRUGS (21)
  1. BEVACIZUMAB [Suspect]
     Indication: COLON CANCER METASTATIC
     Route: 041
     Dates: start: 20090902, end: 20090902
  2. BEVACIZUMAB [Suspect]
     Route: 041
     Dates: start: 20091014, end: 20091014
  3. BEVACIZUMAB [Suspect]
     Route: 041
     Dates: start: 20091118, end: 20091118
  4. BEVACIZUMAB [Suspect]
     Route: 041
     Dates: start: 20091209, end: 20091209
  5. BEVACIZUMAB [Suspect]
     Route: 041
     Dates: start: 20100106, end: 20100106
  6. OXALIPLATIN [Concomitant]
     Route: 041
     Dates: start: 20090902, end: 20090902
  7. OXALIPLATIN [Concomitant]
     Route: 041
     Dates: start: 20091014, end: 20091014
  8. OXALIPLATIN [Concomitant]
     Route: 041
     Dates: start: 20091118, end: 20091118
  9. OXALIPLATIN [Concomitant]
     Route: 041
     Dates: start: 20091209, end: 20091209
  10. OXALIPLATIN [Concomitant]
     Route: 041
     Dates: start: 20100106, end: 20100106
  11. TS-1 [Concomitant]
     Route: 048
     Dates: start: 20090902, end: 20090916
  12. TS-1 [Concomitant]
     Route: 048
     Dates: start: 20091014, end: 20091028
  13. TS-1 [Concomitant]
     Route: 048
     Dates: start: 20091118, end: 20091202
  14. TS-1 [Concomitant]
     Route: 048
     Dates: start: 20091209, end: 20091223
  15. TS-1 [Concomitant]
     Route: 048
     Dates: start: 20100106, end: 20100113
  16. TS-1 [Concomitant]
     Route: 048
     Dates: start: 20100114, end: 20100114
  17. TS-1 [Concomitant]
     Route: 048
     Dates: start: 20100115, end: 20100120
  18. MAGNESIUM OXIDE [Concomitant]
     Dosage: AT NECESSITY
     Route: 048
     Dates: start: 20090819
  19. KYTRIL [Concomitant]
     Dosage: MINUTE GRAIN
     Route: 048
     Dates: start: 20090908
  20. LOXONIN [Concomitant]
     Dosage: AT NECESSITY
     Route: 048
     Dates: start: 20100106
  21. SELBEX [Concomitant]
     Dosage: MINUTE GRAIN
     Route: 048
     Dates: start: 20100106

REACTIONS (9)
  - ALANINE AMINOTRANSFERASE INCREASED [None]
  - DISEASE PROGRESSION [None]
  - DISSEMINATED INTRAVASCULAR COAGULATION [None]
  - GASTROINTESTINAL PERFORATION [None]
  - ILEUS PARALYTIC [None]
  - MALIGNANT PLEURAL EFFUSION [None]
  - NEUTROPHIL COUNT DECREASED [None]
  - PERITONITIS [None]
  - SEPTIC SHOCK [None]
